FAERS Safety Report 9611566 (Version 2)
Quarter: 2014Q1

REPORT INFORMATION
  Report Type: Report from Study
  Country: CA (occurrence: CA)
  Receive Date: 20131010
  Receipt Date: 20140128
  Transmission Date: 20141002
  Serious: Yes (Death, Other)
  Sender: FDA-Public Use
  Company Number: PHHY2013CA113363

PATIENT
  Age: 49 Year
  Sex: Male

DRUGS (2)
  1. CLOZARIL [Suspect]
     Indication: SCHIZOPHRENIA
     Dosage: 750 MG, QD (375 MG EVERY MORNING AND 375 MG EVERY EVENING)
     Dates: start: 200001
  2. OLANZAPINE [Concomitant]
     Dosage: 5 MG, QHS
     Route: 048

REACTIONS (6)
  - Bronchopneumonia [Fatal]
  - Asthma [Fatal]
  - Myocardial infarction [Fatal]
  - Dyspnoea [Unknown]
  - Coronary artery disease [Unknown]
  - Circulatory collapse [Unknown]
